FAERS Safety Report 8494197-4 (Version None)
Quarter: 2012Q3

REPORT INFORMATION
  Report Type: 
  Country: None (occurrence: None)
  Receive Date: 20120709
  Receipt Date: 20120705
  Transmission Date: 20120928
  Serious: Yes (Death, Hospitalization)
  Sender: FDA-Public Use
  Company Number: PHHY2012CA049037

PATIENT
  Sex: Male

DRUGS (2)
  1. CLOZARIL [Suspect]
     Indication: SCHIZOPHRENIA
     Route: 048
     Dates: start: 19900101
  2. LITHIUM CARBONATE [Concomitant]
     Indication: SCHIZOPHRENIA
     Dosage: 900 MG, DAILY

REACTIONS (2)
  - OESOPHAGEAL CARCINOMA [None]
  - DEATH [None]
